FAERS Safety Report 20720122 (Version 6)
Quarter: 2025Q2

REPORT INFORMATION
  Report Type: Spontaneous
  Country: US (occurrence: US)
  Receive Date: 20220418
  Receipt Date: 20250423
  Transmission Date: 20250717
  Serious: No
  Sender: PFIZER
  Company Number: US-PFIZER INC-202200495056

PATIENT
  Age: 11 Year
  Sex: Male
  Weight: 36.29 kg

DRUGS (1)
  1. GENOTROPIN [Suspect]
     Active Substance: SOMATROPIN
     Indication: Short stature
     Dosage: 0.6 MG, DAILY
     Dates: start: 202012

REACTIONS (8)
  - Nervousness [Unknown]
  - Injection site pain [Unknown]
  - Anxiety [Unknown]
  - Feeling abnormal [Unknown]
  - Wrong technique in device usage process [Unknown]
  - Incorrect dose administered by device [Unknown]
  - Device breakage [Unknown]
  - Device leakage [Unknown]
